FAERS Safety Report 5590651-3 (Version None)
Quarter: 2008Q1

REPORT INFORMATION
  Report Type: 
  Country: None (occurrence: None)
  Receive Date: 20080109
  Receipt Date: 20071231
  Transmission Date: 20080703
  Serious: Yes (Hospitalization)
  Sender: FDA-Public Use
  Company Number: 2006US001499

PATIENT
  Age: 58 Year
  Sex: Male

DRUGS (15)
  1. PROGRAF [Suspect]
     Indication: LIVER TRANSPLANT
     Dosage: 1 MG, UID/QD, ORAL
     Route: 048
     Dates: start: 20051128, end: 20061024
  2. MYCOPHENOLATE MOFETIL [Suspect]
     Indication: LIVER TRANSPLANT
     Dosage: 1000 MG, BID, ORAL : 500 MG, BID
     Route: 048
     Dates: start: 20051126
  3. COLACE (DOCUSATE SODIUM) [Concomitant]
  4. WELLBUTRIN [Concomitant]
  5. URSODIOL (URSODEOXYCHOLIC ACID) [Concomitant]
  6. PROZAC [Concomitant]
  7. MULTIVITAMIN (VITAMIN NOS) [Concomitant]
  8. PEGASYS [Concomitant]
  9. TERAZOSIN HCL [Concomitant]
  10. LORCET (HYDROCODONE BITARTRATE) [Concomitant]
  11. NEXIUM [Concomitant]
  12. MIDODRINE [Concomitant]
  13. AQUAMEPHYTON (PHYTOMENADIONE) [Concomitant]
  14. LEVAQUIN [Concomitant]
  15. TOPROL-XL [Concomitant]

REACTIONS (13)
  - DIVERTICULUM [None]
  - ENTEROCOCCAL INFECTION [None]
  - FAILURE TO THRIVE [None]
  - HAEMODIALYSIS [None]
  - HAEMORRHOIDS [None]
  - LIVER TRANSPLANT REJECTION [None]
  - LOWER GASTROINTESTINAL HAEMORRHAGE [None]
  - MENTAL STATUS CHANGES [None]
  - NAUSEA [None]
  - RECTAL ULCER [None]
  - RENAL FAILURE [None]
  - SEPSIS [None]
  - VOMITING [None]
